FAERS Safety Report 18694232 (Version 1)
Quarter: 2020Q4

REPORT INFORMATION
  Report Type: Spontaneous
  Country: US (occurrence: US)
  Receive Date: 20201231
  Receipt Date: 20201231
  Transmission Date: 20210114
  Serious: No
  Sender: FDA-Public Use
  Company Number: None

PATIENT
  Age: 55 Year
  Sex: Female
  Weight: 72 kg

DRUGS (14)
  1. FLOMAX [Concomitant]
     Active Substance: TAMSULOSIN HYDROCHLORIDE
  2. FISH OIL [Concomitant]
     Active Substance: FISH OIL
  3. SYNTHROID [Concomitant]
     Active Substance: LEVOTHYROXINE SODIUM
  4. COENZYME Q10 [Concomitant]
     Active Substance: DIETARY SUPPLEMENT\UBIDECARENONE
  5. LIPITOR [Concomitant]
     Active Substance: ATORVASTATIN CALCIUM
  6. NALTREXONE [Concomitant]
     Active Substance: NALTREXONE
  7. ESTROVEN [Concomitant]
     Active Substance: DIETARY SUPPLEMENT
  8. FOMOTADINE [Concomitant]
  9. CLARITIN [Concomitant]
     Active Substance: LORATADINE
  10. RED YEAST RICE [Concomitant]
     Active Substance: DIETARY SUPPLEMENT
  11. MAGNESIUM [Concomitant]
     Active Substance: MAGNESIUM
  12. BAMLANIVIMAB. [Suspect]
     Active Substance: BAMLANIVIMAB
     Indication: SARS-COV-2 TEST POSITIVE
     Dosage: ?          OTHER FREQUENCY:ONE TIME INFUSION;?
     Route: 042
     Dates: start: 20201231, end: 20201231
  13. PROGESTERONE. [Concomitant]
     Active Substance: PROGESTERONE
  14. SPIRONOLACTONE. [Concomitant]
     Active Substance: SPIRONOLACTONE

REACTIONS (9)
  - Swelling face [None]
  - Sneezing [None]
  - Exophthalmos [None]
  - Ocular discomfort [None]
  - Ear pain [None]
  - Discomfort [None]
  - Head discomfort [None]
  - Intentional product use issue [None]
  - Rhinorrhoea [None]

NARRATIVE: CASE EVENT DATE: 20201231
